FAERS Safety Report 14700072 (Version 1)
Quarter: 2018Q1

REPORT INFORMATION
  Report Type: Spontaneous
  Country: FR (occurrence: FR)
  Receive Date: 20180330
  Receipt Date: 20180330
  Transmission Date: 20180509
  Serious: Yes (Hospitalization)
  Sender: FDA-Public Use
  Company Number: FR-TEVA-2018-FR-873542

PATIENT
  Age: 46 Year
  Sex: Female

DRUGS (9)
  1. MIANSERINE (CHLORHYDRATE DE) [Suspect]
     Active Substance: MIANSERIN HYDROCHLORIDE
     Route: 048
     Dates: end: 20160620
  2. TRANXENE [Suspect]
     Active Substance: CLORAZEPATE DIPOTASSIUM
     Route: 048
     Dates: end: 20160620
  3. COAPROVEL 300 MG/25 MG, COMPRIME PELLICULE [Suspect]
     Active Substance: HYDROCHLOROTHIAZIDE\IRBESARTAN
     Indication: HYPERTENSION
     Route: 048
     Dates: end: 20160620
  4. SOTALOL (CHLORHYDRATE DE) [Suspect]
     Active Substance: SOTALOL
     Route: 048
  5. THERALENE 4 POUR CENT, SOLUTION BUVABLE EN GOUTTES [Suspect]
     Active Substance: TRIMEPRAZINE
     Route: 048
     Dates: end: 20160620
  6. TIAPRIDAL 100 MG, COMPRIME SECABLE [Suspect]
     Active Substance: TIAPRIDE HYDROCHLORIDE
     Route: 048
     Dates: end: 20160620
  7. LOXAPAC [Suspect]
     Active Substance: LOXAPINE
     Route: 048
     Dates: end: 20160620
  8. NOCTAMIDE 2 MG, COMPRIME SECABLE [Suspect]
     Active Substance: LORMETAZEPAM
     Route: 048
     Dates: end: 20160620
  9. PROFENID LP 200 MG, COMPRIME ENROBE A LIBERATION PROLONGEE [Suspect]
     Active Substance: KETOPROFEN
     Route: 048
     Dates: end: 20160620

REACTIONS (5)
  - Malaise [Recovered/Resolved]
  - Hypotension [Recovered/Resolved]
  - Rhabdomyolysis [Recovered/Resolved]
  - Renal failure [Recovered/Resolved]
  - Fall [Recovered/Resolved]

NARRATIVE: CASE EVENT DATE: 20160618
